FAERS Safety Report 22294531 (Version 2)
Quarter: 2024Q2

REPORT INFORMATION
  Report Type: Spontaneous
  Country: US (occurrence: US)
  Receive Date: 20230508
  Receipt Date: 20240415
  Transmission Date: 20240716
  Serious: Yes (Other)
  Sender: FDA-Public Use
  Company Number: US-ASTELLAS-2022US039543

PATIENT
  Age: 79 Year
  Sex: Female

DRUGS (6)
  1. LEXISCAN [Suspect]
     Active Substance: REGADENOSON
     Indication: Scan myocardial perfusion
     Dosage: 0.4 MG, UNKNOWN FREQ.(ADMINISTERED OVER 10 SECONDS)
     Route: 042
     Dates: start: 20221101, end: 20221101
  2. LEXISCAN [Suspect]
     Active Substance: REGADENOSON
     Indication: Scan myocardial perfusion
     Dosage: 0.4 MG, UNKNOWN FREQ.(ADMINISTERED OVER 10 SECONDS)
     Route: 042
     Dates: start: 20221101, end: 20221101
  3. LEXISCAN [Suspect]
     Active Substance: REGADENOSON
     Indication: Scan myocardial perfusion
     Dosage: 0.4 MG, UNKNOWN FREQ.(ADMINISTERED OVER 10 SECONDS)
     Route: 042
     Dates: start: 20221101, end: 20221101
  4. LEXISCAN [Suspect]
     Active Substance: REGADENOSON
     Indication: Scan myocardial perfusion
     Dosage: 0.4 MG, UNKNOWN FREQ.(ADMINISTERED OVER 10 SECONDS)
     Route: 042
     Dates: start: 20221101, end: 20221101
  5. ASPIRIN [Concomitant]
     Active Substance: ASPIRIN
     Indication: Coronary artery disease
     Route: 065
  6. ATORVASTATIN [Concomitant]
     Active Substance: ATORVASTATIN
     Indication: Hyperlipidaemia
     Route: 065

REACTIONS (4)
  - Generalised tonic-clonic seizure [Recovered/Resolved]
  - Loss of consciousness [Recovered/Resolved]
  - Postictal state [Recovered/Resolved]
  - Incorrect product administration duration [Unknown]

NARRATIVE: CASE EVENT DATE: 20221101
